FAERS Safety Report 10229485 (Version 3)
Quarter: 2014Q3

REPORT INFORMATION
  Report Type: Report from Study
  Country: BR (occurrence: BR)
  Receive Date: 20140611
  Receipt Date: 20140815
  Transmission Date: 20150326
  Serious: Yes (Other)
  Sender: FDA-Public Use
  Company Number: PHHY2014BR071302

PATIENT
  Age: 25 Year
  Sex: Female
  Weight: 49.5 kg

DRUGS (18)
  1. OMEPRAZOLE. [Concomitant]
     Active Substance: OMEPRAZOLE
     Indication: GASTRIC DISORDER
     Dosage: 1 DF, DAILY
     Route: 048
  2. AZITHROMYCIN [Concomitant]
     Active Substance: AZITHROMYCIN ANHYDROUS
     Indication: LOWER RESPIRATORY TRACT INFLAMMATION
     Dosage: 1 DF, TIW
     Route: 048
  3. TOBRAMYCIN [Concomitant]
     Active Substance: TOBRAMYCIN
     Indication: PSEUDOMONAS INFECTION
     Dosage: 1 DF, EVERY 12 HRS
     Route: 055
  4. PANCREATIC ENZYMES [Concomitant]
     Active Substance: UNSPECIFIED INGREDIENT
     Indication: PANCREATIC INSUFFICIENCY
     Dosage: 4 DF, DAILY (FORMULATION 25000)
  5. OMEPRAZOLE. [Concomitant]
     Active Substance: OMEPRAZOLE
     Indication: GASTRITIS
  6. NOEX [Concomitant]
     Dosage: 28 MG, UNK
     Route: 045
  7. MONTELAIR [Concomitant]
     Active Substance: MONTELUKAST SODIUM
     Indication: NASAL POLYPS
     Dosage: 1 DF, DAILY
     Route: 048
  8. CERAZETTE [Concomitant]
     Active Substance: DESOGESTREL
     Indication: MENSTRUAL DISORDER
     Dosage: 1 DF, QD
  9. NOEX [Concomitant]
     Indication: SINUSITIS
     Dosage: 32 MG, UNK
     Route: 055
  10. ZOTEON PODHALER [Suspect]
     Active Substance: TOBRAMYCIN
     Indication: CYSTIC FIBROSIS
  11. PULMOZYME [Concomitant]
     Active Substance: DORNASE ALFA
     Indication: FLUID RETENTION
     Dosage: 1 DF, DAILY
     Route: 055
  12. CREON [Concomitant]
     Active Substance: PANCRELIPASE AMYLASE\PANCRELIPASE LIPASE\PANCRELIPASE PROTEASE
     Dosage: 25 IU, UNK
     Route: 048
  13. ZOTEON PODHALER [Suspect]
     Active Substance: TOBRAMYCIN
     Indication: PSEUDOMONAS INFECTION
     Dosage: 8 CAPSULES (4 CAPSULES IN THE MORNING AND 4 CAPSULES AT NIGHT), UNK
     Route: 055
     Dates: start: 20140429, end: 20140624
  14. CREON [Concomitant]
     Active Substance: PANCRELIPASE AMYLASE\PANCRELIPASE LIPASE\PANCRELIPASE PROTEASE
     Dosage: 10 IU, UNK
     Route: 048
  15. PANCREATIC ENZYMES [Concomitant]
     Active Substance: UNSPECIFIED INGREDIENT
     Dosage: 2 DF, DAILY IN THE BREAKFAST TIME AND IN THE SNACK TIME (FORMULATION 1000)
  16. DOMPERIDONE [Concomitant]
     Active Substance: DOMPERIDONE
     Indication: GASTRIC DISORDER
     Dosage: 1 DF, DAILY
     Route: 048
  17. DOMPERIDONE [Concomitant]
     Active Substance: DOMPERIDONE
     Indication: REFLUX GASTRITIS
  18. SALBUTAMOL [Concomitant]
     Active Substance: ALBUTEROL
     Dosage: UNK UKN, UNK
     Route: 055

REACTIONS (8)
  - Obstructive airways disorder [Recovered/Resolved]
  - Cough [Recovered/Resolved]
  - Abasia [Recovered/Resolved]
  - Fatigue [Recovered/Resolved]
  - Asthma [Recovered/Resolved]
  - Aphonia [Recovering/Resolving]
  - Increased bronchial secretion [Recovered/Resolved]
  - Dysphonia [Recovered/Resolved]

NARRATIVE: CASE EVENT DATE: 20140430
